FAERS Safety Report 11793062 (Version 1)
Quarter: 2015Q4

REPORT INFORMATION
  Report Type: Spontaneous
  Country: US (occurrence: None)
  Receive Date: 20151130
  Receipt Date: 20151130
  Transmission Date: 20160305
  Serious: Yes (Hospitalization)
  Sender: FDA-Public Use
  Company Number: 2015US-106811

PATIENT
  Age: 55 Year
  Sex: Male

DRUGS (12)
  1. METHOTREXATE (METHOTREXATE) UNKNOWN [Suspect]
     Active Substance: METHOTREXATE
     Indication: BURKITT^S LYMPHOMA
     Dosage: DAY 10, UNKNOWN
  2. METHOTREXATE (METHOTREXATE) UNKNOWN [Suspect]
     Active Substance: METHOTREXATE
     Indication: BURKITT^S LYMPHOMA
     Route: 037
  3. RITUXIMAB (RITUXIMAB) UNKNOWN [Suspect]
     Active Substance: RITUXIMAB
     Indication: BURKITT^S LYMPHOMA
  4. ZIPRASIDONE. [Concomitant]
     Active Substance: ZIPRASIDONE
  5. VINCRISTINE (VINCRISTINE) UNKNOWN [Suspect]
     Active Substance: VINCRISTINE
     Indication: BURKITT^S LYMPHOMA
  6. CLOZAPINE (CLOZAPINE) UNKNOWN [Suspect]
     Active Substance: CLOZAPINE
     Indication: SCHIZOAFFECTIVE DISORDER
     Dates: start: 2001
  7. DOXORUBICIN (DOXORUBICIN HYDROCHLORIDE) UNKNOWN [Suspect]
     Active Substance: DOXORUBICIN HYDROCHLORIDE
     Indication: BURKITT^S LYMPHOMA
  8. ETOPOSIDE (ETOPOSIDE) UNKNOWN [Suspect]
     Active Substance: ETOPOSIDE
     Indication: BURKITT^S LYMPHOMA
  9. MESNA (MESNA) UNKNOWN [Suspect]
     Active Substance: MESNA
     Indication: BURKITT^S LYMPHOMA
  10. CYCLOPHOSPHAMIDE (CYCLOPHOSPHAMIDE) UNKNOWN [Suspect]
     Active Substance: CYCLOPHOSPHAMIDE
     Indication: BURKITT^S LYMPHOMA
  11. IFOSFAMIDE (IFOSFAMIDE) UNKNOWN [Suspect]
     Active Substance: IFOSFAMIDE
     Indication: BURKITT^S LYMPHOMA
  12. CYTARABINE (CYTARABINE) UNKNOWN [Suspect]
     Active Substance: CYTARABINE
     Indication: BURKITT^S LYMPHOMA

REACTIONS (2)
  - Agranulocytosis [None]
  - Febrile neutropenia [None]
